FAERS Safety Report 4595686-5 (Version None)
Quarter: 2005Q1

REPORT INFORMATION
  Report Type: 
  Country: None (occurrence: None)
  Receive Date: 20050224
  Receipt Date: 20050208
  Transmission Date: 20050727
  Serious: No
  Sender: FDA-Public Use
  Company Number: 10254

PATIENT

DRUGS (3)
  1. METHOTREXATE [Suspect]
     Indication: ALLERGIC GRANULOMATOUS ANGIITIS
     Dosage: 0.3 MG/KG WEEKLY IV
     Route: 042
  2. FOLINIC ACID [Concomitant]
  3. PREDNISOLONE [Concomitant]

REACTIONS (1)
  - NEUROPATHY PERIPHERAL [None]
